FAERS Safety Report 8458519-2 (Version None)
Quarter: 2012Q2

REPORT INFORMATION
  Report Type: 
  Country: None (occurrence: None)
  Receive Date: 20120622
  Receipt Date: 20120618
  Transmission Date: 20120825
  Serious: No
  Sender: FDA-Public Use
  Company Number: US-PFIZER INC-2012147379

PATIENT
  Sex: Female

DRUGS (24)
  1. ZOMIG [Suspect]
     Dosage: UNK
  2. KEFLEX [Suspect]
     Dosage: UNK
  3. SKELAXIN [Suspect]
     Dosage: UNK
  4. CLINDAMYCIN HCL [Suspect]
     Dosage: UNK
  5. TRAMADOL HCL [Suspect]
     Dosage: UNK
  6. BUTORPHANOL [Suspect]
     Dosage: UNK
  7. FROVA [Suspect]
     Dosage: UNK
  8. LYRICA [Suspect]
     Dosage: UNK
  9. PROCHLORPERAZINE [Suspect]
     Dosage: UNK
  10. TALWIN [Suspect]
     Dosage: UNK
  11. CIPROFLOXACIN HCL [Suspect]
     Dosage: UNK
  12. CYPROHEPTADINE HCL [Suspect]
     Dosage: UNK
  13. BENADRYL [Suspect]
     Dosage: 2% SPRAY
  14. SCOPOLAMINE [Suspect]
     Dosage: UNK
  15. NAPROXEN [Suspect]
     Dosage: UNK
  16. VALIUM [Suspect]
     Dosage: UNK
  17. REGLAN [Suspect]
     Dosage: UNK
  18. KETOROLAC TROMETHAMINE [Suspect]
     Dosage: UNK
  19. LIDOCAINE HYDROCHLORIDE [Suspect]
     Dosage: UNK
  20. LOVENOX [Suspect]
     Dosage: UNK
  21. AUGMENTIN '125' [Suspect]
     Dosage: UNK
  22. DIHYDROERGOTAMINE MESYLATE [Suspect]
     Dosage: UNK
  23. CELEBREX [Suspect]
     Dosage: UNK
  24. DOXYCYCLINE MONOHYDRATE [Suspect]
     Dosage: UNK

REACTIONS (1)
  - DRUG HYPERSENSITIVITY [None]
